FAERS Safety Report 7282389-1 (Version None)
Quarter: 2011Q1

REPORT INFORMATION
  Report Type: 
  Country: None (occurrence: None)
  Receive Date: 20110131
  Receipt Date: 20110119
  Transmission Date: 20110831
  Serious: Yes (Other)
  Sender: FDA-Public Use
  Company Number: 10-001298

PATIENT
  Age: 41 Year
  Sex: Female
  Weight: 60.3 kg

DRUGS (11)
  1. MORPHINE (MORPHINE HYDROCHLORIDE) INJECTION [Concomitant]
  2. INDIGOTIN DISULF [Concomitant]
  3. LIDOCAINE (LIDOCAINE HYDROCHLORICE [Concomitant]
  4. KETOROLAC TROMETAMOL (KETOROLAC TROMETHAMINE) [Concomitant]
  5. SIMETHICONE TABLET [Concomitant]
  6. ONDANSETRON [Concomitant]
  7. MEPERIDINE HCL [Concomitant]
  8. ESTRACE [Suspect]
     Indication: ATROPHIC VULVOVAGINITIS
     Dosage: 0.5 G NIGHTLY TO EVERY OTHER NIGHT, VAGINAL; 0.5 G 2-3 TIMES A WEEK, VAGINAL
     Route: 067
     Dates: start: 20080227, end: 20081001
  9. ESTRACE [Suspect]
     Indication: ATROPHIC VULVOVAGINITIS
     Dosage: 0.5 G NIGHTLY TO EVERY OTHER NIGHT, VAGINAL; 0.5 G 2-3 TIMES A WEEK, VAGINAL
     Route: 067
     Dates: start: 20091001, end: 20100101
  10. ACETAMINOPHEN W/CODEINE (CODEINE, PARACETAMOL) TABLET [Concomitant]
  11. THROMBIN LOCAL SOLUTION [Concomitant]

REACTIONS (5)
  - MIGRAINE [None]
  - BREAST CANCER IN SITU [None]
  - POST PROCEDURAL HAEMORRHAGE [None]
  - CYSTOCELE [None]
  - CRYING [None]
